FAERS Safety Report 7552500-3 (Version None)
Quarter: 2011Q2

REPORT INFORMATION
  Report Type: 
  Country: None (occurrence: None)
  Receive Date: 20110616
  Receipt Date: 20110603
  Transmission Date: 20111010
  Serious: Yes (Life-Threatening, Hospitalization, Other)
  Sender: FDA-Public Use
  Company Number: US-BAYER-2010-003490

PATIENT
  Age: 24 Year
  Sex: Female
  Weight: 86.168 kg

DRUGS (6)
  1. WELLBUTRIN XL [Concomitant]
     Indication: ANXIETY
  2. YAZ [Suspect]
     Indication: PRODUCT USED FOR UNKNOWN INDICATION
  3. YASMIN [Suspect]
     Indication: PRODUCT USED FOR UNKNOWN INDICATION
  4. BUPROPION HCL [Concomitant]
     Indication: ANXIETY
  5. AXERT [Concomitant]
     Indication: HEADACHE
  6. IBUPROFEN [Concomitant]
     Indication: PAIN
     Dosage: UNK UNK, PRN

REACTIONS (7)
  - VENOUS VALVE RUPTURED [None]
  - THORACIC OUTLET SYNDROME [None]
  - DEEP VEIN THROMBOSIS [None]
  - FEAR [None]
  - ANHEDONIA [None]
  - PAIN [None]
  - INJURY [None]
